FAERS Safety Report 7838356-X (Version None)
Quarter: 2011Q4

REPORT INFORMATION
  Report Type: 
  Country: None (occurrence: None)
  Receive Date: 20111024
  Receipt Date: 20111011
  Transmission Date: 20120403
  Serious: Yes (Life-Threatening, Hospitalization)
  Sender: FDA-Public Use
  Company Number: US-GILEAD-2010-0028585

PATIENT

DRUGS (2)
  1. QUININE SULFATE [Suspect]
     Route: 042
  2. TENOFOVIR DISOPROXIL FUMARATE [Suspect]
     Dates: end: 20100322

REACTIONS (1)
  - CEREBRAL MALARIA [None]
